FAERS Safety Report 24408631 (Version 1)
Quarter: 2024Q4

REPORT INFORMATION
  Report Type: Spontaneous
  Country: US (occurrence: US)
  Receive Date: 20241007
  Receipt Date: 20241007
  Transmission Date: 20250115
  Serious: No
  Sender: RECKITT BENCKISER
  Company Number: US-INDIVIOR US-INDV-144596-2024

PATIENT
  Age: 32 Year
  Sex: Male

DRUGS (2)
  1. SUBLOCADE [Suspect]
     Active Substance: BUPRENORPHINE
     Indication: Drug abuse
     Dosage: 100 MILLIGRAM, QMO
     Route: 058
     Dates: start: 20240109
  2. SUBLOCADE [Suspect]
     Active Substance: BUPRENORPHINE
     Dosage: 100 MILLIGRAM, QMO (2ND INJECTION)
     Route: 058
     Dates: start: 20240403

REACTIONS (3)
  - Inappropriate schedule of product administration [Recovered/Resolved]
  - Injection site ulcer [Not Recovered/Not Resolved]
  - Injection site pruritus [Unknown]

NARRATIVE: CASE EVENT DATE: 20240201
